FAERS Safety Report 4664482-2 (Version None)
Quarter: 2005Q2

REPORT INFORMATION
  Report Type: 
  Country: None (occurrence: None)
  Receive Date: 20050516
  Receipt Date: 20050516
  Transmission Date: 20051028
  Serious: Yes (Other)
  Sender: FDA-Public Use
  Company Number: None

PATIENT
  Sex: Female
  Weight: 73.9363 kg

DRUGS (7)
  1. FENTANYL [Suspect]
     Indication: PAIN
     Dosage: 100 MCG/HR
     Route: 062
     Dates: start: 20050316, end: 20050425
  2. LEXAPRO [Concomitant]
  3. FLEXERIL [Concomitant]
  4. SALSALATE [Concomitant]
  5. EFFEXOR [Concomitant]
  6. NORTRIPTYLINE HCL [Concomitant]
  7. PERCOCET [Concomitant]

REACTIONS (2)
  - PHARMACEUTICAL PRODUCT COMPLAINT [None]
  - URTICARIA [None]
